FAERS Safety Report 11010066 (Version 1)
Quarter: 2015Q2

REPORT INFORMATION
  Report Type: Spontaneous
  Country: JP (occurrence: JP)
  Receive Date: 20150410
  Receipt Date: 20150410
  Transmission Date: 20150821
  Serious: Yes (Death, Other)
  Sender: FDA-Public Use
  Company Number: JP-PFIZER INC-2015021885

PATIENT
  Age: 13 Year
  Sex: Male
  Weight: 47.9 kg

DRUGS (6)
  1. ETOPOSIDE. [Concomitant]
     Active Substance: ETOPOSIDE
     Dosage: UNK
     Dates: start: 20150114, end: 20150115
  2. IDAMYCIN [Suspect]
     Active Substance: IDARUBICIN HYDROCHLORIDE
     Dosage: 15 MG, 1X/DAY
     Route: 042
     Dates: start: 20150114
  3. CYLOCIDE [Concomitant]
     Active Substance: CYTARABINE
     Dosage: UNK
     Dates: start: 20150114, end: 20150115
  4. CYLOCIDE [Concomitant]
     Active Substance: CYTARABINE
     Dosage: UNK
     Route: 037
     Dates: start: 20150114
  5. METHOTREXATE [Concomitant]
     Active Substance: METHOTREXATE
  6. SAXIZON [Concomitant]
     Active Substance: HYDROCORTISONE SODIUM SUCCINATE

REACTIONS (5)
  - Cardiac failure [Fatal]
  - Sepsis [Unknown]
  - Loss of consciousness [Unknown]
  - Vomiting [Unknown]
  - Abdominal pain upper [Unknown]

NARRATIVE: CASE EVENT DATE: 20150115
